FAERS Safety Report 21614795 (Version 1)
Quarter: 2022Q4

REPORT INFORMATION
  Report Type: Spontaneous
  Country: CN (occurrence: CN)
  Receive Date: 20221118
  Receipt Date: 20221118
  Transmission Date: 20230113
  Serious: Yes (Other)
  Sender: FDA-Public Use
  Company Number: CN-009507513-2211CHN004840

PATIENT
  Age: 66 Year
  Sex: Male
  Weight: 60 kg

DRUGS (3)
  1. CILASTATIN SODIUM\IMIPENEM [Suspect]
     Active Substance: CILASTATIN SODIUM\IMIPENEM
     Indication: Wound sepsis
     Dosage: 1 G QID
     Route: 041
     Dates: start: 20221014, end: 20221101
  2. VORICONAZOLE [Suspect]
     Active Substance: VORICONAZOLE
     Indication: Antifungal treatment
     Dosage: 0.2 G BID
     Route: 041
     Dates: start: 20221016, end: 20221025
  3. VORICONAZOLE [Suspect]
     Active Substance: VORICONAZOLE
     Dosage: 0.1 G Q12H
     Route: 041
     Dates: start: 20221025, end: 20221102

REACTIONS (5)
  - Gastrointestinal tube insertion [Unknown]
  - Vomiting [Recovering/Resolving]
  - Abdominal distension [Recovering/Resolving]
  - Dyschezia [Unknown]
  - Surgery [Unknown]

NARRATIVE: CASE EVENT DATE: 20221001
